FAERS Safety Report 7293085-9 (Version None)
Quarter: 2011Q1

REPORT INFORMATION
  Report Type: 
  Country: None (occurrence: None)
  Receive Date: 20110203
  Receipt Date: 20110119
  Transmission Date: 20110831
  Serious: Yes (Other)
  Sender: FDA-Public Use
  Company Number: 025950

PATIENT
  Age: 92 Year
  Sex: Male

DRUGS (10)
  1. XYZAL [Suspect]
     Indication: PRURITUS
     Dosage: (5 MG QD ORAL)
     Route: 048
     Dates: start: 20101221, end: 20110111
  2. GASMOTIN [Concomitant]
  3. MAGMITT [Concomitant]
  4. ATARAX [Concomitant]
  5. ASPIRIN [Concomitant]
  6. PREDNISOLONE [Concomitant]
  7. ZADITEN /00495202/ [Concomitant]
  8. MEDILAC-BEBE [Concomitant]
  9. NORVASC [Concomitant]
  10. BLOPRESS [Concomitant]

REACTIONS (2)
  - INSOMNIA [None]
  - HALLUCINATION [None]
